FAERS Safety Report 16430705 (Version 1)
Quarter: 2019Q3

REPORT INFORMATION
  Report Type: Spontaneous
  Country: US (occurrence: US)
  Receive Date: 20190613
  Receipt Date: 20190613
  Transmission Date: 20191004
  Serious: Yes (Other)
  Sender: FDA-Public Use
  Company Number: None

PATIENT
  Age: 56 Year
  Sex: Female
  Weight: 66.15 kg

DRUGS (13)
  1. METHYLPREDNISOLONE. [Concomitant]
     Active Substance: METHYLPREDNISOLONE
  2. HERCEPTIN HYLECTA [Concomitant]
     Active Substance: TRASTUZUMAB AND HYALURONIDASE-OYSK
  3. CAPECITABINE. [Suspect]
     Active Substance: CAPECITABINE
     Indication: BREAST CANCER FEMALE
     Route: 048
     Dates: start: 20190521
  4. VITAMIN D3 [Concomitant]
     Active Substance: CHOLECALCIFEROL
  5. PERJETA [Concomitant]
     Active Substance: PERTUZUMAB
  6. HYDROXYUREA. [Concomitant]
     Active Substance: HYDROXYUREA
  7. CANDESARTAN CILEXETIL. [Concomitant]
     Active Substance: CANDESARTAN CILEXETIL
  8. CAPECITABINE. [Suspect]
     Active Substance: CAPECITABINE
     Indication: BREAST CANCER FEMALE
     Route: 048
     Dates: start: 20190521
  9. VITAMIN C [Concomitant]
     Active Substance: ASCORBIC ACID
  10. VSL#3 [Concomitant]
     Active Substance: PROBIOTICS NOS
  11. CALCIUM CARBONATE. [Concomitant]
     Active Substance: CALCIUM CARBONATE
  12. XGEVA [Concomitant]
     Active Substance: DENOSUMAB
  13. MVI [Concomitant]
     Active Substance: VITAMINS

REACTIONS (2)
  - Diarrhoea [None]
  - Palmar-plantar erythrodysaesthesia syndrome [None]
